FAERS Safety Report 15148862 (Version 1)
Quarter: 2018Q3

REPORT INFORMATION
  Report Type: Spontaneous
  Country: US (occurrence: US)
  Receive Date: 20180619
  Receipt Date: 20180619
  Transmission Date: 20181010
  Serious: Yes (Hospitalization)
  Sender: FDA-Public Use
  Company Number: None

PATIENT
  Age: 25 Year
  Sex: Male

DRUGS (2)
  1. MTP KIT MIFEPRISTONE [Suspect]
     Active Substance: MIFEPRISTONE
     Indication: ABORTION
     Dosage: ?          QUANTITY:5 TABLET(S);?
     Route: 048
     Dates: start: 20180601, end: 20180602
  2. MTP KIT MISOPROSTOL [Suspect]
     Active Substance: MISOPROSTOL

REACTIONS (1)
  - Uterine haemorrhage [None]

NARRATIVE: CASE EVENT DATE: 20180602
